FAERS Safety Report 19008358 (Version 1)
Quarter: 2021Q1

REPORT INFORMATION
  Report Type: Spontaneous
  Country: US (occurrence: US)
  Receive Date: 20210316
  Receipt Date: 20210316
  Transmission Date: 20210420
  Serious: Yes (Hospitalization)
  Sender: FDA-Public Use
  Company Number: US-STRIDES ARCOLAB LIMITED-2020SP015587

PATIENT
  Age: 82 Year
  Sex: Male

DRUGS (1)
  1. PREDNISOLONE. [Suspect]
     Active Substance: PREDNISOLONE
     Indication: COVID-19
     Dosage: UNK
     Route: 065

REACTIONS (2)
  - Off label use [Unknown]
  - Bronchopulmonary aspergillosis [Unknown]
